FAERS Safety Report 4407714-8 (Version None)
Quarter: 2004Q3

REPORT INFORMATION
  Report Type: 
  Country: None (occurrence: None)
  Receive Date: 20040726
  Receipt Date: 20030502
  Transmission Date: 20050211
  Serious: Yes (Hospitalization)
  Sender: FDA-Public Use
  Company Number: JP-BRISTOL-MYERS SQUIBB COMPANY-12264198

PATIENT
  Age: 47 Year
  Sex: Male

DRUGS (5)
  1. STOCRIN CAPS [Suspect]
     Indication: ACQUIRED IMMUNODEFICIENCY SYNDROME
     Route: 048
     Dates: start: 20001221, end: 20040331
  2. ZERIT [Suspect]
     Indication: ACQUIRED IMMUNODEFICIENCY SYNDROME
     Route: 048
     Dates: start: 20001221, end: 20020224
  3. EPIVIR [Suspect]
     Indication: ACQUIRED IMMUNODEFICIENCY SYNDROME
     Route: 048
     Dates: start: 20001221, end: 20040331
  4. RETROVIR [Suspect]
     Indication: ACQUIRED IMMUNODEFICIENCY SYNDROME
     Route: 048
     Dates: start: 20020225, end: 20040331
  5. BAKTAR [Concomitant]
     Dosage: DOSAGE FORM = TABLET
     Route: 048
     Dates: start: 20010201, end: 20040331

REACTIONS (5)
  - HERPES SIMPLEX [None]
  - HYPERLACTACIDAEMIA [None]
  - HYPOAESTHESIA [None]
  - NAUSEA [None]
  - VOMITING [None]
